FAERS Safety Report 6874911-1 (Version None)
Quarter: 2010Q3

REPORT INFORMATION
  Report Type: 
  Country: None (occurrence: None)
  Receive Date: 20100723
  Receipt Date: 20100712
  Transmission Date: 20110219
  Serious: Yes (Hospitalization, Other)
  Sender: FDA-Public Use
  Company Number: 230730J08CAN

PATIENT
  Age: 55 Year
  Sex: Male

DRUGS (13)
  1. REBIF [Suspect]
     Indication: RELAPSING-REMITTING MULTIPLE SCLEROSIS
     Dosage: 44 MCG, 3 IN 1 WK ; 44 MCG, 3 IN 1 WK
     Dates: start: 20060914, end: 20090201
  2. REBIF [Suspect]
     Indication: RELAPSING-REMITTING MULTIPLE SCLEROSIS
     Dosage: 44 MCG, 3 IN 1 WK ; 44 MCG, 3 IN 1 WK
     Dates: start: 20090717
  3. TEGRETOL [Concomitant]
  4. AMITRIPTYLINE HYDROCHLORIDE [Concomitant]
  5. CARBMAZ (CARBAMAZEPINE) [Concomitant]
  6. CITALOPRAM HYDROBROMIDE [Concomitant]
  7. CLAVEX (CO-AMOXICLAV) (AMOXICILLIN W/CLAVULANATE POTASSIUM) [Concomitant]
  8. RAMIPRIL [Concomitant]
  9. PANTOPRAZOLE SODIUM [Concomitant]
  10. LORAZEPAM OR APO-LORAZEPAM(LORAZEPAM) [Concomitant]
  11. LIPITOR [Concomitant]
  12. METOPROLOL SUCCINATE [Concomitant]
  13. ASPIRIN [Concomitant]

REACTIONS (18)
  - BLOOD CHOLESTEROL INCREASED [None]
  - CONVULSION [None]
  - CORONARY ARTERY OCCLUSION [None]
  - DECREASED APPETITE [None]
  - DISTURBANCE IN ATTENTION [None]
  - FATIGUE [None]
  - GAIT DISTURBANCE [None]
  - HEAD INJURY [None]
  - HEART RATE DECREASED [None]
  - HYPOAESTHESIA [None]
  - IMPAIRED DRIVING ABILITY [None]
  - LOSS OF CONSCIOUSNESS [None]
  - MEMORY IMPAIRMENT [None]
  - MYOCARDIAL INFARCTION [None]
  - NAUSEA [None]
  - PERIPHERAL COLDNESS [None]
  - SKIN LACERATION [None]
  - WEIGHT DECREASED [None]
